FAERS Safety Report 5976467-4 (Version None)
Quarter: 2008Q4

REPORT INFORMATION
  Report Type: 
  Country: None (occurrence: None)
  Receive Date: 20081126
  Receipt Date: 20081113
  Transmission Date: 20090506
  Serious: Yes (Other)
  Sender: FDA-Public Use
  Company Number: CIP08002397

PATIENT
  Age: 67 Year
  Sex: Female

DRUGS (7)
  1. ACTONEL WITH CALCIUM (COPACKAGED) [Suspect]
     Dosage: 35 MG, ORAL
     Route: 048
  2. ENBREL [Concomitant]
  3. DIOVAN [Concomitant]
  4. CALCIUM + VITAMIN D (CALCIUM, COLECALCIFEROL) [Concomitant]
  5. VITAMIN C /00008001/(ASCORBIC ACID) [Concomitant]
  6. VITAMIN E /00110501/ (TOCOPHEROL) [Concomitant]
  7. FOLIC ACID [Concomitant]

REACTIONS (1)
  - FAILURE OF IMPLANT [None]
